FAERS Safety Report 6673258-6 (Version None)
Quarter: 2010Q2

REPORT INFORMATION
  Report Type: 
  Country: None (occurrence: None)
  Receive Date: 20100408
  Receipt Date: 20100329
  Transmission Date: 20101027
  Serious: Yes (Death)
  Sender: FDA-Public Use
  Company Number: US-WATSON-2010-03976

PATIENT
  Sex: Male
  Weight: 138 kg

DRUGS (1)
  1. FENTANYL-50 [Suspect]
     Indication: DRUG USE FOR UNKNOWN INDICATION
     Dosage: UNK
     Route: 062

REACTIONS (6)
  - ACCIDENTAL OVERDOSE [None]
  - BRAIN HYPOXIA [None]
  - BRAIN OEDEMA [None]
  - DRUG TOXICITY [None]
  - PULMONARY OEDEMA [None]
  - SWELLING FACE [None]
